FAERS Safety Report 20069386 (Version 1)
Quarter: 2021Q4

REPORT INFORMATION
  Report Type: Spontaneous
  Country: US (occurrence: None)
  Receive Date: 20211113
  Receipt Date: 20211113
  Transmission Date: 20220303
  Serious: Yes (Disabling)
  Sender: FDA-Public Use
  Company Number: None

PATIENT
  Age: 68 Year
  Sex: Male
  Weight: 94.5 kg

DRUGS (1)
  1. CIPROFLOXACIN [Suspect]
     Active Substance: CIPROFLOXACIN
     Indication: Urinary tract infection
     Dates: start: 20211027, end: 20211031

REACTIONS (6)
  - Tendon disorder [None]
  - Neuropathy peripheral [None]
  - Burning sensation [None]
  - Rash [None]
  - Suicidal ideation [None]
  - Helplessness [None]

NARRATIVE: CASE EVENT DATE: 20211027
